FAERS Safety Report 4391420-2 (Version None)
Quarter: 2004Q3

REPORT INFORMATION
  Report Type: 
  Country: None (occurrence: None)
  Receive Date: 20040707
  Receipt Date: 20030213
  Transmission Date: 20050211
  Serious: Yes (Hospitalization)
  Sender: FDA-Public Use
  Company Number: JP-GLAXOSMITHKLINE-B0292461A

PATIENT
  Age: 49 Year
  Sex: Male

DRUGS (20)
  1. VALTREX [Suspect]
     Indication: HERPES ZOSTER
     Dosage: 1000MG THREE TIMES PER DAY
     Route: 048
     Dates: start: 20030208, end: 20030209
  2. FLOMOXEF SODIUM [Concomitant]
     Indication: RASH
     Dosage: 1G PER DAY
     Route: 042
     Dates: start: 20030208, end: 20030209
  3. DROXIDOPA [Concomitant]
     Indication: HYPOTENSION
     Dosage: 1CAP PER DAY
     Route: 048
  4. LOXOPROFEN SODIUM [Concomitant]
     Indication: HERPES ZOSTER
     Dosage: 2TAB PER DAY
     Route: 048
     Dates: start: 20030208, end: 20030209
  5. NICORANDIL [Concomitant]
     Indication: ANGINA PECTORIS
     Dosage: 15MG PER DAY
     Route: 048
  6. NATEGLINIDE [Concomitant]
     Indication: DIABETES MELLITUS
     Dosage: 2TAB PER DAY
     Route: 048
  7. ALLOPURINOL [Concomitant]
     Indication: HYPERURICAEMIA
     Dosage: 1TAB PER DAY
     Route: 048
  8. PRECIPITATED CALCIUM CARBONATE [Concomitant]
     Dosage: 2.5G PER DAY
     Route: 048
  9. AROTINOLOL HYDROCHLORIDE [Concomitant]
     Indication: HYPERTENSION
     Dosage: 10MG PER DAY
     Route: 048
  10. ASPIRIN [Concomitant]
     Indication: ANGINA PECTORIS
     Dosage: 2TAB PER DAY
     Route: 048
  11. ISOSORBIDE DINITRATE [Concomitant]
     Indication: ANGINA PECTORIS
     Dosage: 40MG PER DAY
     Route: 048
  12. MECOBALAMIN [Concomitant]
     Indication: NERVOUS SYSTEM DISORDER
     Dosage: 3TAB PER DAY
     Route: 048
  13. VITAMIN B COMPLEX CAP [Concomitant]
     Indication: HERPES ZOSTER
     Dosage: 2TAB PER DAY
     Route: 048
     Dates: start: 20030208, end: 20030209
  14. VITAMIN B COMPLEX CAP [Concomitant]
     Indication: RASH
     Dosage: 10ML PER DAY
     Route: 042
     Dates: start: 20030208, end: 20030209
  15. ZINC OXIDE [Concomitant]
     Indication: HERPES ZOSTER
     Route: 065
     Dates: start: 20030208, end: 20030209
  16. SODIUM BICARBONATE [Concomitant]
     Indication: RASH
     Dosage: 1CAP PER DAY
     Route: 048
     Dates: start: 20030208, end: 20030209
  17. GLYCYRRHIZIN [Concomitant]
     Dosage: 20ML PER DAY
     Route: 042
  18. CALCITRIOL [Concomitant]
     Dosage: 1.5MCG PER DAY
     Route: 042
     Dates: end: 20030208
  19. VITAMEDIN [Concomitant]
     Indication: HERPES ZOSTER
     Route: 048
     Dates: start: 20030208, end: 20030209
  20. NEO-MINOPHAGEN C [Concomitant]
     Route: 042

REACTIONS (9)
  - ANOREXIA [None]
  - ANURIA [None]
  - BLOOD POTASSIUM INCREASED [None]
  - DELIRIUM [None]
  - DEPRESSED LEVEL OF CONSCIOUSNESS [None]
  - HALLUCINATION [None]
  - HYPOTENSION [None]
  - LOGORRHOEA [None]
  - VOMITING [None]
